FAERS Safety Report 4302256-2 (Version None)
Quarter: 2004Q1

REPORT INFORMATION
  Report Type: 
  Country: None (occurrence: None)
  Receive Date: 20040220
  Receipt Date: 20040205
  Transmission Date: 20041129
  Serious: Yes (Death)
  Sender: FDA-Public Use
  Company Number: D01200400064

PATIENT
  Age: 63 Year
  Sex: Male
  Weight: 91.5 kg

DRUGS (15)
  1. CISPLATIN- SOLUTION - 55 MG/M2 [Suspect]
     Indication: SMALL CELL LUNG CANCER EXTENSIVE STAGE
     Dosage: 55 MG/M2 CONT - INTRAVENOUS NOS
     Route: 042
     Dates: start: 20040102, end: 20040102
  2. ETOPOSIDE [Suspect]
     Indication: SMALL CELL LUNG CANCER EXTENSIVE STAGE
     Dosage: 90 MG/M2 GIVEN ON DAYS 1, 2 AND 3, IN A 30-MINUTE INFUSION - INTRAVENOUS NOS
     Route: 042
     Dates: start: 20040102, end: 20040104
  3. ESOMEPRAZOLE [Concomitant]
  4. ACENOCOUMAROL [Concomitant]
  5. SIMVASTATIN [Concomitant]
  6. BENZALAMIDE [Concomitant]
  7. CARVEDILOL [Concomitant]
  8. OXAZEPAM [Concomitant]
  9. QUINAPRIL HCL [Concomitant]
  10. METOCLOPRAMIDE [Concomitant]
  11. GRANISETRON [Concomitant]
  12. DEXAMETHASONE [Concomitant]
  13. FUROSEMIDE [Concomitant]
  14. BUMETANIDE [Concomitant]
  15. FENTANYL [Concomitant]

REACTIONS (5)
  - ANAEMIA [None]
  - ARRHYTHMIA [None]
  - FALL [None]
  - REFUSAL OF TREATMENT BY PATIENT [None]
  - SUDDEN DEATH [None]
